FAERS Safety Report 15595786 (Version 2)
Quarter: 2019Q1

REPORT INFORMATION
  Report Type: Spontaneous
  Country: US (occurrence: US)
  Receive Date: 20181107
  Receipt Date: 20190103
  Transmission Date: 20190417
  Serious: No
  Sender: FDA-Public Use
  Company Number: US-ASTRAZENECA-2018SF32019

PATIENT
  Age: 876 Month
  Sex: Female
  Weight: 68 kg

DRUGS (1)
  1. BEVESPI AEROSPHERE [Suspect]
     Active Substance: FORMOTEROL FUMARATE\GLYCOPYRROLATE
     Indication: CHRONIC OBSTRUCTIVE PULMONARY DISEASE
     Dosage: 9 MCG /4.8 MCG, 2 PUFFS TWO TIMES A DAY
     Route: 055
     Dates: start: 201801

REACTIONS (5)
  - Malaise [Unknown]
  - Chest discomfort [Unknown]
  - Device issue [Unknown]
  - Cough [Recovering/Resolving]
  - Wrong technique in product usage process [Recovered/Resolved]

NARRATIVE: CASE EVENT DATE: 201801
